FAERS Safety Report 12799899 (Version 1)
Quarter: 2016Q3

REPORT INFORMATION
  Report Type: Report from Study
  Country: US (occurrence: US)
  Receive Date: 20160930
  Receipt Date: 20160930
  Transmission Date: 20161109
  Serious: Yes (Hospitalization, Other)
  Sender: FDA-Public Use
  Company Number: US-SA-2016SA071286

PATIENT
  Age: 72 Year
  Sex: Male

DRUGS (1)
  1. CAPRELSA [Suspect]
     Active Substance: VANDETANIB
     Indication: THYROID CANCER
     Route: 048
     Dates: start: 20150821

REACTIONS (8)
  - Heart rate increased [Recovering/Resolving]
  - Diarrhoea [Unknown]
  - Skin exfoliation [Unknown]
  - Hospitalisation [Unknown]
  - Electrocardiogram abnormal [Unknown]
  - Fatigue [Unknown]
  - Electrocardiogram QT prolonged [Unknown]
  - Blood pressure increased [Unknown]
